FAERS Safety Report 8657531 (Version 4)
Quarter: 2012Q4

REPORT INFORMATION
  Report Type: 
  Country: BR (occurrence: BR)
  Receive Date: 20120710
  Receipt Date: 20121102
  Transmission Date: 20130627
  Serious: Yes (Death, Hospitalization)
  Sender: FDA-Public Use
  Company Number: PHHY2011BR92979

PATIENT
  Sex: Female

DRUGS (9)
  1. XOLAIR [Suspect]
     Indication: BRONCHITIS
     Route: 058
     Dates: start: 2010
  2. XOLAIR [Suspect]
     Indication: DYSPNOEA
  3. XOLAIR [Suspect]
     Indication: ASTHMA
  4. FORASEQ [Suspect]
     Indication: ASTHMA
     Dosage: 2 DF, 12/400 2 capsules every 4 hours for 23 years
  5. PREDNISONE [Concomitant]
     Indication: DYSPNOEA
     Dosage: 3 DF,  tablets a day for 5 days
     Route: 048
  6. PREDNISONE [Concomitant]
     Indication: ASTHMA
     Dosage: 0.5 DF, QD
     Route: 048
  7. PREDNISONE [Concomitant]
     Dosage: 80 mg, 60 to 80 mg for 23 years
     Route: 048
  8. SALBUTAMOL [Concomitant]
     Indication: DYSPNOEA
     Dosage: once every 4 hours or every 6 hours, many years
  9. SALBUTAMOL [Concomitant]
     Indication: ASTHMA
     Dosage: 3 mg, UNK

REACTIONS (12)
  - Death [Fatal]
  - Asthma [Recovering/Resolving]
  - Bronchitis [Unknown]
  - Speech disorder [Unknown]
  - Insomnia [Recovering/Resolving]
  - Fatigue [Recovering/Resolving]
  - Chest pain [Recovering/Resolving]
  - Back pain [Recovering/Resolving]
  - Wheezing [Recovering/Resolving]
  - Dyspnoea [Recovering/Resolving]
  - Hypertension [Unknown]
  - Drug ineffective [Unknown]
